FAERS Safety Report 16614539 (Version 2)
Quarter: 2020Q1

REPORT INFORMATION
  Report Type: Spontaneous
  Country: US (occurrence: US)
  Receive Date: 20190723
  Receipt Date: 20200121
  Transmission Date: 20200409
  Serious: No
  Sender: FDA-Public Use
  Company Number: US-PFIZER INC-2019227391

PATIENT
  Age: 62 Year
  Sex: Female
  Weight: 74 kg

DRUGS (3)
  1. LYRICA [Suspect]
     Active Substance: PREGABALIN
     Indication: OSTEOARTHRITIS
  2. LYRICA [Suspect]
     Active Substance: PREGABALIN
     Indication: PAIN
     Dosage: 200 MG, 3X/DAY
     Route: 048
     Dates: start: 2018
  3. LYRICA [Suspect]
     Active Substance: PREGABALIN
     Indication: OSTEOPOROSIS
     Dosage: 200 MG, AS NEEDED (PRN)
     Route: 048

REACTIONS (1)
  - Weight increased [Unknown]
